FAERS Safety Report 5078095-4 (Version None)
Quarter: 2006Q3

REPORT INFORMATION
  Report Type: 
  Country: None (occurrence: None)
  Receive Date: 20060811
  Receipt Date: 20060803
  Transmission Date: 20061208
  Serious: Yes (Hospitalization)
  Sender: FDA-Public Use
  Company Number: FR-AVENTIS-200612738FR

PATIENT
  Age: 75 Year
  Sex: Male

DRUGS (1)
  1. LASILIX [Suspect]
     Indication: DRUG USE FOR UNKNOWN INDICATION
     Route: 048
     Dates: start: 20060601, end: 20060620

REACTIONS (3)
  - CYTOLYTIC HEPATITIS [None]
  - JAUNDICE [None]
  - RENAL FAILURE ACUTE [None]
